FAERS Safety Report 4325014-1 (Version None)
Quarter: 2004Q1

REPORT INFORMATION
  Report Type: 
  Country: None (occurrence: None)
  Receive Date: 20040326
  Receipt Date: 20040225
  Transmission Date: 20041129
  Serious: Yes (Hospitalization)
  Sender: FDA-Public Use
  Company Number: JP-ROCHE-359765

PATIENT
  Age: 44 Year
  Sex: Female
  Weight: 43 kg

DRUGS (5)
  1. XELODA [Suspect]
     Indication: BREAST CANCER
     Route: 048
     Dates: start: 20030627, end: 20030909
  2. XELODA [Suspect]
     Route: 048
     Dates: start: 20030924, end: 20040225
  3. XELODA [Suspect]
     Route: 048
     Dates: start: 20040301
  4. UNKNOWN DRUG [Suspect]
     Route: 065
  5. IRSOGLADINE [Concomitant]
     Indication: PROPHYLAXIS
     Route: 048
     Dates: start: 20030627

REACTIONS (5)
  - BLOOD CREATINE PHOSPHOKINASE INCREASED [None]
  - BLOOD LACTATE DEHYDROGENASE INCREASED [None]
  - CONVULSION [None]
  - LOSS OF CONSCIOUSNESS [None]
  - PALMAR-PLANTAR ERYTHRODYSAESTHESIA SYNDROME [None]
